FAERS Safety Report 21453351 (Version 1)
Quarter: 2022Q4

REPORT INFORMATION
  Report Type: Spontaneous
  Country: US (occurrence: US)
  Receive Date: 20221013
  Receipt Date: 20221013
  Transmission Date: 20230112
  Serious: No
  Sender: FDA-Public Use
  Company Number: US-BRISTOL-MYERS SQUIBB COMPANY-2022-120224

PATIENT
  Age: 73 Year
  Sex: Female

DRUGS (1)
  1. REVLIMID [Suspect]
     Active Substance: LENALIDOMIDE
     Indication: Plasma cell myeloma
     Route: 048
     Dates: start: 20220831

REACTIONS (7)
  - Tremor [Unknown]
  - Nervousness [Unknown]
  - Asthenia [Unknown]
  - Gait disturbance [Unknown]
  - Fatigue [Unknown]
  - Muscle spasms [Unknown]
  - Somnolence [Unknown]
